FAERS Safety Report 23623621 (Version 1)
Quarter: 2024Q1

REPORT INFORMATION
  Report Type: Spontaneous
  Country: AU (occurrence: AU)
  Receive Date: 20240312
  Receipt Date: 20240312
  Transmission Date: 20240409
  Serious: Yes (Other)
  Sender: FDA-Public Use
  Company Number: AU-TAKEDA-2024TUS022820

PATIENT
  Sex: Female

DRUGS (8)
  1. ENTYVIO [Suspect]
     Active Substance: VEDOLIZUMAB
     Indication: Crohn^s disease
     Dosage: 108 MILLIGRAM, Q2WEEKS
     Route: 065
     Dates: start: 20221222
  2. ENTYVIO [Suspect]
     Active Substance: VEDOLIZUMAB
     Indication: Crohn^s disease
     Dosage: 300 MILLIGRAM
     Route: 065
     Dates: start: 201802, end: 202204
  3. ENTYVIO [Suspect]
     Active Substance: VEDOLIZUMAB
     Dosage: 300 MILLIGRAM, Q4WEEKS
     Route: 065
     Dates: start: 202204, end: 202212
  4. TACROLIMUS [Suspect]
     Active Substance: TACROLIMUS
     Indication: Crohn^s disease
     Dosage: UNK
     Route: 065
     Dates: start: 20221222
  5. USTEKINUMAB [Suspect]
     Active Substance: USTEKINUMAB
     Indication: Crohn^s disease
     Dosage: 90 MILLIGRAM, Q8WEEKS
     Route: 065
     Dates: start: 201710, end: 201806
  6. USTEKINUMAB [Suspect]
     Active Substance: USTEKINUMAB
     Dosage: 90 MILLIGRAM, Q4WEEKS
     Route: 065
     Dates: start: 20221228
  7. ROPIVACAINE [Concomitant]
     Active Substance: ROPIVACAINE
  8. Salofalk [Concomitant]
     Dosage: UNK UNK, QD
     Dates: start: 202006, end: 202009

REACTIONS (3)
  - Anal abscess [Unknown]
  - Anal fistula [Unknown]
  - Product use in unapproved indication [Unknown]
